FAERS Safety Report 8467383-7 (Version None)
Quarter: 2012Q2

REPORT INFORMATION
  Report Type: 
  Country: None (occurrence: None)
  Receive Date: 20120626
  Receipt Date: 20120619
  Transmission Date: 20120825
  Serious: Yes (Hospitalization, Other)
  Sender: FDA-Public Use
  Company Number: PHHY2009JP26404

PATIENT
  Sex: Female
  Weight: 154 kg

DRUGS (25)
  1. TASIGNA [Suspect]
     Dosage: 200 MG AND 400 MG DAILY ALTERNATELY
     Route: 048
     Dates: start: 20100811, end: 20101005
  2. CEFDINIR [Concomitant]
     Dosage: 200 MG, DAILY
     Route: 048
     Dates: start: 20090708, end: 20090729
  3. COTRIM [Concomitant]
     Indication: PROPHYLAXIS
     Dosage: 1 G, DAILY
     Route: 048
     Dates: start: 20090101, end: 20100414
  4. LAC B [Concomitant]
     Dosage: 2 G, DAILY
     Route: 048
     Dates: start: 20090101
  5. TASIGNA [Suspect]
     Indication: CHRONIC MYELOID LEUKAEMIA
     Dosage: 400 MG, DAILY
     Route: 048
     Dates: start: 20090612, end: 20090714
  6. LANSOPRAZOLE [Concomitant]
     Indication: PROPHYLAXIS
     Dosage: 15 MG, DAILY
     Route: 048
  7. DIFLUCAN [Concomitant]
     Indication: PROPHYLAXIS
     Dosage: 100 MG, DAILY
     Route: 048
     Dates: start: 20090101, end: 20090715
  8. FLOMOX [Concomitant]
     Indication: PROPHYLAXIS
     Dosage: 300 MG, DAILY
     Dates: start: 20100728, end: 20100802
  9. TASIGNA [Suspect]
     Dosage: 600 MG, DAILY
     Route: 048
     Dates: start: 20090715, end: 20090721
  10. TOPSYM [Concomitant]
     Dosage: UNK UKN, UNK
     Dates: start: 20090704
  11. URSO 250 [Concomitant]
     Dosage: 1 G, DAILY
     Route: 048
     Dates: start: 20090101
  12. LEVOTHYROXINE SODIUM [Concomitant]
     Dosage: 200 MG, DAILY
     Route: 048
     Dates: start: 20090101
  13. TASIGNA [Suspect]
     Dosage: 600 MG, DAILY
     Route: 048
     Dates: start: 20090924, end: 20100702
  14. TASIGNA [Suspect]
     Dosage: 200 MG, DAILY
     Route: 048
     Dates: start: 20100728
  15. LOXONIN [Concomitant]
     Dosage: 180 MG, DAILY
     Route: 048
     Dates: start: 20090618, end: 20090916
  16. TASIGNA [Suspect]
     Dosage: 400 MG, DAILY
     Route: 048
     Dates: start: 20100722, end: 20100727
  17. TASIGNA [Suspect]
     Dosage: 400 MG, DAILY
     Route: 048
     Dates: start: 20101006
  18. COLCHICINE [Concomitant]
  19. VOLTAREN [Concomitant]
  20. FUCIDINE CAP [Concomitant]
     Dosage: UNK UKN, UNK
     Dates: start: 20090711
  21. URSO 250 [Concomitant]
     Dosage: 200 MG, DAILY
     Route: 048
     Dates: start: 20090101
  22. TASIGNA [Suspect]
     Dosage: 800 MG, DAILY
     Route: 048
     Dates: start: 20090722, end: 20090923
  23. LEVOTHYROXINE SODIUM [Concomitant]
     Dosage: 50 UG, DAILY
     Route: 048
     Dates: start: 20090101
  24. SELBEX [Concomitant]
     Indication: PROPHYLAXIS
     Dosage: 150 MG, DAILY
     Route: 048
     Dates: start: 20090526, end: 20090630
  25. MYONAL [Concomitant]
     Dosage: 100 MG, DAILY
     Route: 048
     Dates: start: 20100701, end: 20100718

REACTIONS (4)
  - ERYTHEMA NODOSUM [None]
  - HYPERTENSION [None]
  - PNEUMONIA [None]
  - PULMONARY OEDEMA [None]
